FAERS Safety Report 9336058 (Version 3)
Quarter: 2014Q1

REPORT INFORMATION
  Report Type: Report from Study
  Country: SE (occurrence: SE)
  Receive Date: 20130607
  Receipt Date: 20140218
  Transmission Date: 20141002
  Serious: Yes (Other)
  Sender: FDA-Public Use
  Company Number: SE-AMGEN-SWECT2013039985

PATIENT
  Age: 61 Year
  Sex: Female

DRUGS (3)
  1. ETANERCEPT [Suspect]
     Indication: PSORIATIC ARTHROPATHY
     Dosage: 50 MG, WEEKLY
     Route: 058
     Dates: start: 20110131, end: 20130514
  2. PREDNISOLON                        /00016201/ [Concomitant]
     Dosage: 5 MG, UNKNOWN FREQUENCY
     Dates: start: 20101005
  3. METHOTREXATE [Concomitant]
     Dosage: 20 MG, UNKNOWN FREQUENCY
     Dates: start: 20110131

REACTIONS (3)
  - Polyneuropathy [Unknown]
  - Diplopia [Unknown]
  - Myopathy [Unknown]
